FAERS Safety Report 17795817 (Version 3)
Quarter: 2020Q4

REPORT INFORMATION
  Report Type: Spontaneous
  Country: US (occurrence: US)
  Receive Date: 20200516
  Receipt Date: 20201204
  Transmission Date: 20210113
  Serious: No
  Sender: FDA-Public Use
  Company Number: NVSC2020US133047

PATIENT
  Sex: Female

DRUGS (2)
  1. TAFINLAR [Suspect]
     Active Substance: DABRAFENIB MESYLATE
     Indication: HISTIOCYTOSIS
     Dosage: 75 MG, Q12H
     Route: 048
     Dates: start: 20160407
  2. MEKINIST [Suspect]
     Active Substance: TRAMETINIB DIMETHYL SULFOXIDE
     Indication: HISTIOCYTOSIS
     Dosage: 1 MG, QD
     Route: 048
     Dates: start: 20160407

REACTIONS (4)
  - Dry eye [Recovered/Resolved]
  - Product use in unapproved indication [Unknown]
  - Vision blurred [Recovered/Resolved]
  - Rash pruritic [Unknown]
